FAERS Safety Report 9275760 (Version 2)
Quarter: 2013Q2

REPORT INFORMATION
  Report Type: Report from Study
  Country: US (occurrence: US)
  Receive Date: 20130507
  Receipt Date: 20130516
  Transmission Date: 20140414
  Serious: Yes (Other)
  Sender: FDA-Public Use
  Company Number: US-ABBOTT-13P-163-1085335-00

PATIENT
  Age: 21 Year
  Sex: Male

DRUGS (3)
  1. HUMIRA [Suspect]
     Indication: CROHN^S DISEASE
     Dosage: DAY 1
     Route: 058
     Dates: start: 201110, end: 201110
  2. HUMIRA [Suspect]
     Dosage: DAY 16
     Route: 058
  3. HUMIRA [Suspect]
     Route: 058

REACTIONS (2)
  - Large intestinal stenosis [Recovered/Resolved]
  - Crohn^s disease [Unknown]
